FAERS Safety Report 7774878-8 (Version None)
Quarter: 2011Q3

REPORT INFORMATION
  Report Type: 
  Country: None (occurrence: None)
  Receive Date: 20110921
  Receipt Date: 20110909
  Transmission Date: 20111222
  Serious: Yes (Disabling)
  Sender: FDA-Public Use
  Company Number: 2011MA013516

PATIENT
  Age: 69 Year
  Sex: Male

DRUGS (12)
  1. PREGABALIN [Concomitant]
  2. ATORVASTATIN [Concomitant]
  3. HYDROXOCOBALAMIN [Concomitant]
  4. GLICLAZIDE [Concomitant]
  5. CLOPIDOGREL [Concomitant]
  6. ATORVASTATIN [Concomitant]
  7. OMEPRAZOLE [Concomitant]
  8. PREGABALIN [Concomitant]
  9. AMOXICILLIN [Concomitant]
  10. GLICLAZIDE [Concomitant]
  11. DICLOFENAC SODIUM [Suspect]
     Dates: start: 20110826
  12. CLOPIDOGREL [Concomitant]

REACTIONS (3)
  - PRURITUS GENERALISED [None]
  - DISABILITY [None]
  - EYE SWELLING [None]
